FAERS Safety Report 5085306-8 (Version None)
Quarter: 2006Q3

REPORT INFORMATION
  Report Type: 
  Country: None (occurrence: None)
  Receive Date: 20060817
  Receipt Date: 20060808
  Transmission Date: 20061208
  Serious: Yes (Congenital Anomaly)
  Sender: FDA-Public Use
  Company Number: 2006021998

PATIENT
  Sex: Female

DRUGS (11)
  1. VIRACEPT [Suspect]
     Indication: HIV TEST POSITIVE
     Dosage: 2500 MG (2 IN 1 D), ORAL
     Route: 048
     Dates: start: 20051017, end: 20060429
  2. NORVIR [Suspect]
     Indication: HIV TEST POSITIVE
     Dosage: SEE IMAGE
     Route: 048
     Dates: end: 20051017
  3. NORVIR [Suspect]
     Indication: HIV TEST POSITIVE
     Dosage: SEE IMAGE
     Route: 048
     Dates: end: 20060429
  4. REYATAZ [Suspect]
     Indication: HIV TEST POSITIVE
     Dosage: SEE IMAGE
     Route: 048
     Dates: end: 20051017
  5. REYATAZ [Suspect]
     Indication: HIV TEST POSITIVE
     Dosage: SEE IMAGE
     Route: 048
     Dates: end: 20060429
  6. TRUVADA [Suspect]
     Indication: HIV TEST POSITIVE
     Dosage: SEE IMAGE
     Route: 048
     Dates: end: 20051017
  7. TRUVADA [Suspect]
     Indication: HIV TEST POSITIVE
     Dosage: SEE IMAGE
     Route: 048
     Dates: end: 20060429
  8. COMBIVIR [Suspect]
     Indication: HIV TEST POSITIVE
     Dosage: 2 IN 1 D, ORAL
     Route: 048
     Dates: start: 20051017, end: 20060429
  9. AZT [Suspect]
     Indication: HIV TEST POSITIVE
     Dosage: SEE IMAGE
     Route: 048
     Dates: start: 20051017
  10. AZT [Suspect]
     Indication: HIV TEST POSITIVE
     Dosage: SEE IMAGE
     Route: 048
     Dates: start: 20060429
  11. LAMIVUDINE [Suspect]
     Indication: HIV TEST POSITIVE
     Dates: start: 20051017

REACTIONS (2)
  - DRUG EXPOSURE DURING PREGNANCY [None]
  - POLYDACTYLY [None]
